FAERS Safety Report 9883551 (Version 3)
Quarter: 2014Q2

REPORT INFORMATION
  Report Type: Spontaneous
  Country: US (occurrence: US)
  Receive Date: 20140210
  Receipt Date: 20140423
  Transmission Date: 20141212
  Serious: No
  Sender: FDA-Public Use
  Company Number: US-B.I. PHARMACEUTICALS,INC./RIDGEFIELD-2014-BI-04952BP

PATIENT
  Age: 78 Year
  Sex: Female
  Weight: 61 kg

DRUGS (6)
  1. SPIRIVA [Suspect]
     Indication: CHRONIC OBSTRUCTIVE PULMONARY DISEASE
     Dosage: 18 MCG
     Route: 055
     Dates: start: 20140201, end: 20140201
  2. TENORMIN [Concomitant]
     Indication: VENTRICULAR EXTRASYSTOLES
     Dosage: 12.5 MG
     Route: 048
  3. NORVASC [Concomitant]
     Indication: HYPERTENSION
     Dosage: 5 MG
     Route: 048
  4. MAXIDE [Concomitant]
     Indication: HYPERTENSION
     Dosage: 12.5 MG
     Route: 048
  5. ACIPHEX [Concomitant]
     Indication: GASTROOESOPHAGEAL REFLUX DISEASE
     Dosage: 20 MG
     Route: 048
  6. SYNTHROID [Concomitant]
     Indication: HYPOTHYROIDISM
     Dosage: 100 MCG
     Route: 048

REACTIONS (2)
  - Choking [Recovered/Resolved]
  - Product quality issue [Recovered/Resolved]
